FAERS Safety Report 8716294 (Version 2)
Quarter: 2012Q4

REPORT INFORMATION
  Report Type: 
  Country: US (occurrence: US)
  Receive Date: 20120810
  Receipt Date: 20120916
  Transmission Date: 20130627
  Serious: No
  Sender: FDA-Public Use
  Company Number: US-009507513-1208USA001876

PATIENT

DRUGS (3)
  1. VICTRELIS [Suspect]
     Indication: HEPATITIS C
     Dosage: 800 mg, tid
     Dates: start: 20120515, end: 20120818
  2. PEG-INTRON [Suspect]
     Indication: HEPATITIS C
     Dosage: 150 Microgram, qw
     Dates: start: 20120515, end: 20120818
  3. RIBASPHERE [Suspect]
     Indication: HEPATITIS C
     Dosage: UNK
     Dates: start: 20120515, end: 20120818

REACTIONS (1)
  - Platelet count decreased [Not Recovered/Not Resolved]
